FAERS Safety Report 9603508 (Version 2)
Quarter: 2013Q4

REPORT INFORMATION
  Report Type: Report from Study
  Country: BR (occurrence: BR)
  Receive Date: 20131007
  Receipt Date: 20131007
  Transmission Date: 20140711
  Serious: Yes (Hospitalization, Other)
  Sender: FDA-Public Use
  Company Number: PHHY2013BR082361

PATIENT
  Age: 69 Year
  Sex: Female
  Weight: 78 kg

DRUGS (13)
  1. EXELON [Suspect]
     Indication: MEMORY IMPAIRMENT
     Dosage: 1 DF, QD (IN THE MORNING)
     Route: 048
  2. EXELON [Suspect]
     Dosage: 1 DF, QD (AT NIGHT)
     Route: 048
     Dates: start: 201307
  3. GALVUS MET [Suspect]
     Indication: DIABETES MELLITUS
     Dosage: 1 DF, BID (BEFORE LUNCH AND DINNER)
     Route: 048
  4. HYDROCHLOROTHIAZIDE [Suspect]
     Dosage: UNK UKN, UNK
  5. NOVOLIN N [Suspect]
     Indication: DIABETES MELLITUS
     Dosage: 20 IU, IN THE MORNING
     Route: 058
  6. ATACAND DUO [Concomitant]
     Indication: HYPERTENSION
     Dosage: 1 DF, IN THE MORNING
     Route: 048
  7. GALVUS [Concomitant]
     Dosage: UNK UKN, UNK
  8. LIPITOR [Concomitant]
     Indication: BLOOD CHOLESTEROL INCREASED
     Dosage: 1 DF, DAILY
     Route: 048
  9. ASPIRINA PREVENT [Concomitant]
     Indication: PERIPHERAL VASCULAR DISORDER
     Dosage: 1 DF, DAILY
     Route: 048
  10. INSULIN [Concomitant]
     Dosage: 20 U, QD
  11. LIORAM [Concomitant]
     Indication: NERVOUSNESS
     Dosage: 1 DF, AT NIGHT
     Route: 048
     Dates: start: 201307
  12. RETEMIC [Concomitant]
     Indication: URINARY INCONTINENCE
     Dosage: 1 DF, IN THE MORNING
     Route: 048
  13. NORTRIPTYLINE HYDROCHLORIDE [Concomitant]
     Indication: HEADACHE
     Dosage: 1 DF, PRN (WHEN SHE FELT HEADACHE)
     Route: 048
     Dates: start: 201305

REACTIONS (9)
  - Retching [Recovering/Resolving]
  - Hypertension [Recovering/Resolving]
  - Vomiting [Recovering/Resolving]
  - Headache [Recovering/Resolving]
  - Asthenia [Recovering/Resolving]
  - Sleep disorder [Unknown]
  - Malaise [Unknown]
  - Insomnia [Unknown]
  - Renal disorder [Unknown]
